FAERS Safety Report 4622323-3 (Version None)
Quarter: 2005Q1

REPORT INFORMATION
  Report Type: 
  Country: None (occurrence: None)
  Receive Date: 20050330
  Receipt Date: 20050204
  Transmission Date: 20050727
  Serious: Yes (Hospitalization)
  Sender: FDA-Public Use
  Company Number: JP-BRISTOL-MYERS SQUIBB COMPANY-12851515

PATIENT
  Age: 33 Year
  Sex: Male

DRUGS (12)
  1. ZERIT [Suspect]
     Indication: HIV INFECTION
     Route: 048
     Dates: start: 20031114
  2. STOCRIN CAPS [Suspect]
     Indication: HIV INFECTION
     Route: 048
     Dates: start: 20031113
  3. EPIVIR [Suspect]
     Indication: HIV INFECTION
     Route: 048
     Dates: start: 20031113
  4. RETROVIR [Suspect]
     Indication: HIV INFECTION
     Route: 048
     Dates: start: 20031113, end: 20031113
  5. COMBIVIR [Suspect]
     Indication: HIV INFECTION
     Route: 048
     Dates: start: 20031105, end: 20031112
  6. KALETRA [Suspect]
     Indication: HIV INFECTION
     Route: 048
     Dates: start: 20031105, end: 20031112
  7. KLARICID [Concomitant]
     Route: 048
     Dates: start: 20030901, end: 20031208
  8. ISCOTIN [Concomitant]
     Route: 048
     Dates: start: 20030901
  9. EBUTOL [Concomitant]
     Route: 048
     Dates: start: 20030901
  10. PYRAMIDE [Concomitant]
     Route: 048
     Dates: start: 20030901
  11. CRAVIT [Concomitant]
     Route: 048
     Dates: start: 20031003, end: 20040311
  12. BAKTAR [Concomitant]
     Route: 048
     Dates: start: 20030901

REACTIONS (2)
  - CYTOMEGALOVIRUS CHORIORETINITIS [None]
  - IMMUNE RECONSTITUTION SYNDROME [None]
